FAERS Safety Report 7635335-2 (Version None)
Quarter: 2011Q3

REPORT INFORMATION
  Report Type: 
  Country: None (occurrence: None)
  Receive Date: 20110718
  Receipt Date: 20110701
  Transmission Date: 20111222
  Serious: Yes (Other)
  Sender: FDA-Public Use
  Company Number: 2011MA008385

PATIENT
  Age: 17 Year
  Sex: Male

DRUGS (2)
  1. FLUOXETINE [Suspect]
     Indication: DEPRESSION
     Dosage: 20 MG, BID
  2. FLUOXETINE [Concomitant]

REACTIONS (4)
  - DRUG INEFFECTIVE [None]
  - AGGRESSION [None]
  - NASOPHARYNGITIS [None]
  - MALAISE [None]
